FAERS Safety Report 25742877 (Version 3)
Quarter: 2025Q3

REPORT INFORMATION
  Report Type: Spontaneous
  Country: ZA (occurrence: ZA)
  Receive Date: 20250830
  Receipt Date: 20250925
  Transmission Date: 20251020
  Serious: Yes (Life-Threatening)
  Sender: MACLEODS
  Company Number: ZA-MACLEODS PHARMA-MAC2025054931

PATIENT

DRUGS (1)
  1. HYDROCHLOROTHIAZIDE\LOSARTAN [Suspect]
     Active Substance: HYDROCHLOROTHIAZIDE\LOSARTAN
     Indication: Essential hypertension
     Dosage: 100/25
     Route: 048
     Dates: start: 20250502, end: 20250820

REACTIONS (2)
  - Drug ineffective [Recovering/Resolving]
  - Expired product administered [Unknown]

NARRATIVE: CASE EVENT DATE: 20250820
